FAERS Safety Report 6442906-8 (Version None)
Quarter: 2009Q4

REPORT INFORMATION
  Report Type: 
  Country: None (occurrence: None)
  Receive Date: 20091117
  Receipt Date: 20091027
  Transmission Date: 20100525
  Serious: No
  Sender: FDA-Public Use
  Company Number: US-BAYER-200937752NA

PATIENT
  Age: 65 Year
  Sex: Male

DRUGS (2)
  1. ULTRAVIST 300 [Suspect]
     Indication: COMPUTERISED TOMOGRAM ABDOMEN
     Dosage: TOTAL DAILY DOSE: 100 ML
     Route: 042
  2. ORAL CONTRAST [Concomitant]
     Route: 048

REACTIONS (4)
  - EYE SWELLING [None]
  - HYPOAESTHESIA ORAL [None]
  - LIP SWELLING [None]
  - ORAL PRURITUS [None]
